FAERS Safety Report 15287750 (Version 3)
Quarter: 2018Q3

REPORT INFORMATION
  Report Type: Spontaneous
  Country: NL (occurrence: NL)
  Receive Date: 20180817
  Receipt Date: 20180831
  Transmission Date: 20181010
  Serious: Yes (Other)
  Sender: FDA-Public Use
  Company Number: NL-AXELLIA-001869

PATIENT
  Age: 60 Year

DRUGS (5)
  1. VORICONAZOLE. [Suspect]
     Active Substance: VORICONAZOLE
     Indication: EVIDENCE BASED TREATMENT
  2. CIPROFLOXACIN. [Concomitant]
     Active Substance: CIPROFLOXACIN
     Indication: RESPIRATORY FAILURE
  3. OSELTAMIVIR/OSELTAMIVIR PHOSPHATE [Concomitant]
     Indication: EVIDENCE BASED TREATMENT
  4. CASPOFUNGIN [Interacting]
     Active Substance: CASPOFUNGIN
     Indication: EVIDENCE BASED TREATMENT
  5. CEFTRIAXONE. [Concomitant]
     Active Substance: CEFTRIAXONE
     Indication: RESPIRATORY FAILURE

REACTIONS (2)
  - Drug interaction [Unknown]
  - Hepatotoxicity [Unknown]
